FAERS Safety Report 5278730-1 (Version None)
Quarter: 2007Q1

REPORT INFORMATION
  Report Type: 
  Country: None (occurrence: None)
  Receive Date: 20070322
  Receipt Date: 20070313
  Transmission Date: 20070707
  Serious: Yes (Hospitalization)
  Sender: FDA-Public Use
  Company Number: 238237

PATIENT
  Age: 35 Year
  Sex: Female

DRUGS (5)
  1. AVASTIN [Suspect]
     Indication: BREAST CANCER
     Dosage: 15 MG/KG, Q3W, INTRAVENOUS
     Route: 042
     Dates: start: 20070301
  2. MICRO-K (POTASSIUM CHLORIDE) [Concomitant]
  3. VICODIN HP (ACETAMINOPHEN, HYDROCODONE BITARTRATE) [Concomitant]
  4. MULTIVITAMIN W-IRON (IRON NOS, MULTIVITAMINS NOS) [Concomitant]
  5. EMLA (LIDOCAINE, PRILOCAINE HYDROCHLORIDE) [Concomitant]

REACTIONS (8)
  - CHEST PAIN [None]
  - COUGH [None]
  - MUSCULOSKELETAL CHEST PAIN [None]
  - NAUSEA [None]
  - NEUTROPENIA [None]
  - QRS AXIS ABNORMAL [None]
  - SINUS TACHYCARDIA [None]
  - WHITE BLOOD CELL COUNT DECREASED [None]
